FAERS Safety Report 20258280 (Version 1)
Quarter: 2021Q4

REPORT INFORMATION
  Report Type: Spontaneous
  Country: FR (occurrence: FR)
  Receive Date: 20211230
  Receipt Date: 20211230
  Transmission Date: 20220303
  Serious: Yes (Hospitalization, Other)
  Sender: FDA-Public Use
  Company Number: None

PATIENT
  Age: 42 Year
  Sex: Male
  Weight: 75 kg

DRUGS (3)
  1. ACETAMINOPHEN\TRAMADOL [Suspect]
     Active Substance: ACETAMINOPHEN\TRAMADOL
     Indication: Suicide attempt
     Dosage: 40 DOSAGE FORM, ONCE
     Route: 048
     Dates: start: 20210918, end: 20210918
  2. CANNABIS SATIVA SUBSP. INDICA TOP [Suspect]
     Active Substance: CANNABIS SATIVA SUBSP. INDICA TOP
     Indication: Product used for unknown indication
     Dosage: UNK
     Route: 055
     Dates: start: 2011
  3. KETOPROFEN [Suspect]
     Active Substance: KETOPROFEN
     Indication: Suicide attempt
     Route: 048
     Dates: start: 20210918, end: 20210918

REACTIONS (6)
  - Suicide attempt [Recovered/Resolved]
  - Road traffic accident [Recovered/Resolved]
  - Multiple injuries [Recovered/Resolved]
  - Somnolence [Recovered/Resolved]
  - Drug abuse [Not Recovered/Not Resolved]
  - Intentional overdose [Unknown]

NARRATIVE: CASE EVENT DATE: 20210918
